FAERS Safety Report 4434370-5 (Version None)
Quarter: 2004Q3

REPORT INFORMATION
  Report Type: 
  Country: None (occurrence: None)
  Receive Date: 20040726
  Receipt Date: 20040421
  Transmission Date: 20050211
  Serious: No
  Sender: FDA-Public Use
  Company Number: USA040464160

PATIENT
  Age: 63 Year
  Sex: Female
  Weight: 73 kg

DRUGS (5)
  1. FORTEO [Suspect]
     Indication: OSTEOPOROSIS
     Dosage: 20 UG/1 IN THE MORNING
     Dates: start: 20040212
  2. CALCIUM [Concomitant]
  3. PRILOSEC [Concomitant]
  4. VITAMIN B COMPLEX CAP [Concomitant]
  5. MAGNESIUM [Concomitant]

REACTIONS (9)
  - ASTHENIA [None]
  - BEREAVEMENT REACTION [None]
  - DIZZINESS [None]
  - FATIGUE [None]
  - FEELING ABNORMAL [None]
  - MALAISE [None]
  - MUSCULOSKELETAL DISCOMFORT [None]
  - NAUSEA [None]
  - PALPITATIONS [None]
